FAERS Safety Report 5048899-2 (Version None)
Quarter: 2006Q3

REPORT INFORMATION
  Report Type: 
  Country: None (occurrence: None)
  Receive Date: 20060712
  Receipt Date: 20050729
  Transmission Date: 20061208
  Serious: No
  Sender: FDA-Public Use
  Company Number: US-GLAXOSMITHKLINE-A0568289A

PATIENT
  Age: 16 Year
  Sex: Female
  Weight: 80 kg

DRUGS (3)
  1. IMITREX [Suspect]
     Indication: MIGRAINE
     Dosage: 25MG AS REQUIRED
     Route: 048
  2. ALLEGRA [Concomitant]
  3. PAXIL [Concomitant]

REACTIONS (2)
  - OEDEMA PERIPHERAL [None]
  - VASODILATATION [None]
